FAERS Safety Report 9269044 (Version 1)
Quarter: 2013Q2

REPORT INFORMATION
  Report Type: Spontaneous
  Country: US (occurrence: US)
  Receive Date: 20130503
  Receipt Date: 20130503
  Transmission Date: 20140414
  Serious: No
  Sender: FDA-Public Use
  Company Number: US-009507513-1305USA000719

PATIENT
  Age: 28 Year
  Sex: Female

DRUGS (4)
  1. SAPHRIS [Suspect]
     Indication: BIPOLAR DISORDER
     Dosage: 10 TO 15 MG ONCE DAILY IN THE EVENING
     Route: 060
     Dates: start: 201302
  2. ADDERALL TABLETS [Concomitant]
  3. ALPRAZOLAM [Concomitant]
  4. TOPAMAX [Concomitant]

REACTIONS (2)
  - Binge eating [Unknown]
  - Inappropriate schedule of drug administration [Unknown]
